FAERS Safety Report 8323054-9 (Version None)
Quarter: 2012Q2

REPORT INFORMATION
  Report Type: 
  Country: None (occurrence: None)
  Receive Date: 20120430
  Receipt Date: 20120420
  Transmission Date: 20120825
  Serious: Yes (Hospitalization)
  Sender: FDA-Public Use
  Company Number: CA-ABBOTT-12P-028-0919332-00

PATIENT
  Age: 82 Year

DRUGS (2)
  1. LUPRON DEPOT [Suspect]
     Indication: PRODUCT USED FOR UNKNOWN INDICATION
     Dosage: NOVEMBER DOSE
     Route: 030
  2. LUPRON DEPOT [Suspect]
     Dosage: FEBRUARY DOSE
     Route: 030

REACTIONS (4)
  - DYSPNOEA [None]
  - ATRIAL FIBRILLATION [None]
  - CARDIAC FAILURE [None]
  - ANXIETY [None]
